FAERS Safety Report 7344591-X (Version None)
Quarter: 2011Q1

REPORT INFORMATION
  Report Type: 
  Country: None (occurrence: None)
  Receive Date: 20110307
  Receipt Date: 20110307
  Transmission Date: 20110831
  Serious: Yes (Other)
  Sender: FDA-Public Use
  Company Number: None

PATIENT
  Age: 7 Year
  Sex: Female
  Weight: 20.4119 kg

DRUGS (2)
  1. SINGULAIR [Suspect]
     Indication: ASTHMA
     Dosage: 5MG 1/DAY PO
     Route: 048
     Dates: start: 20091110, end: 20110228
  2. SINGULAIR [Suspect]
     Indication: HYPERSENSITIVITY
     Dosage: 5MG 1/DAY PO
     Route: 048
     Dates: start: 20091110, end: 20110228

REACTIONS (7)
  - DISTURBANCE IN ATTENTION [None]
  - AGITATION [None]
  - ABNORMAL BEHAVIOUR [None]
  - FEAR [None]
  - OBSESSIVE-COMPULSIVE DISORDER [None]
  - OPPOSITIONAL DEFIANT DISORDER [None]
  - ANGER [None]
